FAERS Safety Report 8662334 (Version 2)
Quarter: 2013Q3

REPORT INFORMATION
  Report Type: Spontaneous
  Country: CO (occurrence: CO)
  Receive Date: 20120712
  Receipt Date: 20130815
  Transmission Date: 20140515
  Serious: Yes (Hospitalization)
  Sender: FDA-Public Use
  Company Number: CO-ELI_LILLY_AND_COMPANY-CO201207003225

PATIENT
  Age: 72 Year
  Sex: Female

DRUGS (13)
  1. FORTEO [Suspect]
     Indication: OSTEOPOROSIS
     Dosage: 20 UG, QD
     Route: 058
     Dates: start: 20120328, end: 20120411
  2. FORTEO [Suspect]
     Dosage: 20 UG, QD
     Route: 058
     Dates: start: 20120426
  3. CALCIUM W/VITAMIN D NOS [Concomitant]
  4. CALCIUM [Concomitant]
  5. CALCITROL [Concomitant]
  6. BIOCALCIUM                         /00751501/ [Concomitant]
  7. LOSARTAN [Concomitant]
  8. PREDNISOLONE [Concomitant]
  9. ACETAMINOPHEN W/CODEINE [Concomitant]
  10. FOLIC ACID [Concomitant]
  11. VITAMIN B12 [Concomitant]
  12. MYLANTA [Concomitant]
  13. CARBAMAZEPINE [Concomitant]
     Dosage: UNK, UNKNOWN
     Route: 065

REACTIONS (3)
  - Cellulitis [Recovering/Resolving]
  - Vein disorder [Not Recovered/Not Resolved]
  - Pyrexia [Recovering/Resolving]
